FAERS Safety Report 9842914 (Version 2)
Quarter: 2014Q1

REPORT INFORMATION
  Report Type: Spontaneous
  Country: US (occurrence: US)
  Receive Date: 20140124
  Receipt Date: 20140124
  Transmission Date: 20141002
  Serious: Yes (Hospitalization)
  Sender: FDA-Public Use
  Company Number: US-B.I. PHARMACEUTICALS,INC./RIDGEFIELD-2013-BI-27306BP

PATIENT
  Age: 80 Year
  Sex: Female
  Weight: 61.23 kg

DRUGS (10)
  1. PRADAXA [Suspect]
     Indication: ATRIAL FIBRILLATION
     Dosage: 150 MG
     Route: 048
     Dates: start: 20110902, end: 20120524
  2. LIPITOR [Concomitant]
  3. COREG [Concomitant]
     Dosage: 6.25 MG
  4. ZETIA [Concomitant]
     Dosage: 10 MG
  5. ASPIRIN [Concomitant]
     Dosage: 81 MG
  6. SARAFEM [Concomitant]
     Dosage: 20 MG
  7. LUMIGAN [Concomitant]
  8. TRUSOPT [Concomitant]
  9. GLUCOPHAGE [Concomitant]
  10. VITAMIN D [Concomitant]
     Route: 048

REACTIONS (2)
  - Subarachnoid haemorrhage [Unknown]
  - Fall [Unknown]
